FAERS Safety Report 6921431-1 (Version None)
Quarter: 2010Q3

REPORT INFORMATION
  Report Type: 
  Country: None (occurrence: None)
  Receive Date: 20100812
  Receipt Date: 20100803
  Transmission Date: 20110219
  Serious: Yes (Congenital Anomaly)
  Sender: FDA-Public Use
  Company Number: GXKR2010GB08739

PATIENT

DRUGS (4)
  1. CITALOPRAM HYDROBROMIDE [Suspect]
     Dosage: MATERNAL DOSE: 20 MG
     Route: 064
     Dates: start: 20090923
  2. DIAZEPAM (NGX) [Suspect]
     Dosage: MATERNAL DOSE: 5 MG
     Route: 064
     Dates: start: 20090827
  3. BETAMETHASONE VALERATE [Suspect]
     Dosage: MATERNAL DOSE: 100 ML
     Route: 064
     Dates: start: 20100415
  4. TRAZODONE HYDROCHLORIDE [Suspect]
     Dosage: MATERNAL DOSE: 100 MG
     Route: 064
     Dates: start: 20090828, end: 20091101

REACTIONS (2)
  - CLEFT PALATE [None]
  - DRUG EXPOSURE DURING PREGNANCY [None]
